FAERS Safety Report 16689668 (Version 1)
Quarter: 2019Q3

REPORT INFORMATION
  Report Type: Spontaneous
  Country: RU (occurrence: RU)
  Receive Date: 20190809
  Receipt Date: 20190809
  Transmission Date: 20191004
  Serious: Yes (Hospitalization)
  Sender: FDA-Public Use
  Company Number: RU-BAUSCH-BL-2019-022053

PATIENT
  Age: 28 Year
  Sex: Female

DRUGS (8)
  1. BROMOCRIPTINE [Suspect]
     Active Substance: BROMOCRIPTINE
     Indication: CARDIAC FAILURE ACUTE
     Route: 065
  2. FUROSEMIDE. [Suspect]
     Active Substance: FUROSEMIDE
     Indication: CARDIAC FAILURE ACUTE
     Route: 042
  3. ENOXAPARIN [Suspect]
     Active Substance: ENOXAPARIN
     Indication: CARDIAC FAILURE ACUTE
     Route: 058
  4. MAGNESIUM SULFATE. [Suspect]
     Active Substance: MAGNESIUM SULFATE
     Indication: CARDIAC FAILURE ACUTE
     Route: 065
  5. METOPROLOL SUCCINATE. [Suspect]
     Active Substance: METOPROLOL SUCCINATE
     Indication: PROPHYLAXIS
     Route: 065
  6. LEVOSIMENDAN [Suspect]
     Active Substance: LEVOSIMENDAN
     Indication: CARDIAC FAILURE ACUTE
     Dosage: 24H INFUSION
     Route: 065
  7. ENALAPRIL [Suspect]
     Active Substance: ENALAPRIL
     Indication: CARDIAC FAILURE ACUTE
     Route: 065
  8. SPIRONOLACTONE. [Suspect]
     Active Substance: SPIRONOLACTONE
     Indication: CARDIAC FAILURE ACUTE
     Route: 065

REACTIONS (2)
  - Hypotension [Recovering/Resolving]
  - Treatment noncompliance [Unknown]
